FAERS Safety Report 9183804 (Version 1)
Quarter: 2013Q1

REPORT INFORMATION
  Report Type: Spontaneous
  Country: US (occurrence: US)
  Receive Date: 20130322
  Receipt Date: 20130322
  Transmission Date: 20140127
  Serious: No
  Sender: FDA-Public Use
  Company Number: US-BRISTOL-MYERS SQUIBB COMPANY-16613762

PATIENT
  Age: 77 Year
  Sex: Male

DRUGS (9)
  1. ERBITUX [Suspect]
     Indication: COLON CANCER
  2. CLARINEX [Concomitant]
  3. GABAPENTIN [Concomitant]
  4. GLIPIZIDE [Concomitant]
  5. NIASPAN [Concomitant]
  6. TRIAMTERENE + HCTZ [Concomitant]
  7. OXYCONTIN [Concomitant]
  8. DOXYCYCLINE [Concomitant]
  9. TRIAMCINOLONE [Concomitant]
     Dosage: OINTMENT

REACTIONS (5)
  - Erythema [Recovering/Resolving]
  - Skin disorder [Recovering/Resolving]
  - Urticaria [Recovering/Resolving]
  - Insomnia [Unknown]
  - Rash [Recovering/Resolving]
